FAERS Safety Report 8962411 (Version 1)
Quarter: 2012Q4

REPORT INFORMATION
  Report Type: Spontaneous
  Country: DK (occurrence: None)
  Receive Date: 20121206
  Receipt Date: 20121206
  Transmission Date: 20130627
  Serious: Yes (Hospitalization)
  Sender: FDA-Public Use
  Company Number: 2012MA013774

PATIENT
  Age: 58 Year
  Sex: Male

DRUGS (10)
  1. EPIRUBICIN HYDROCHLORIDE [Suspect]
  2. CLOZARIL (CLOZAPINE) [Suspect]
     Indication: SCHIZOPHRENIA
     Route: 048
     Dates: start: 20010701, end: 20120718
  3. OXALIPLATIN [Suspect]
  4. CAPECITABINE [Suspect]
  5. HALOPERIDOL [Concomitant]
  6. DALIVIT [Concomitant]
  7. PROCYCLIDINE [Concomitant]
  8. TRIAMIDE [Concomitant]
  9. DALIVIT [Concomitant]
  10. MOVICARD [Concomitant]

REACTIONS (10)
  - Diarrhoea [None]
  - Vomiting [None]
  - Weight decreased [None]
  - White blood cell count decreased [None]
  - Adenocarcinoma gastric [None]
  - Obstruction gastric [None]
  - Platelet count decreased [None]
  - Neutrophil count decreased [None]
  - Malaise [None]
  - White blood cell count increased [None]
